FAERS Safety Report 24410879 (Version 1)
Quarter: 2024Q4

REPORT INFORMATION
  Report Type: Spontaneous
  Country: FR (occurrence: FR)
  Receive Date: 20241008
  Receipt Date: 20241008
  Transmission Date: 20250114
  Serious: Yes (Other)
  Sender: REGENERON
  Company Number: FR-BAYER-2024A132481

PATIENT
  Sex: Female

DRUGS (2)
  1. EYLEA [Suspect]
     Active Substance: AFLIBERCEPT
     Indication: Diabetic retinal oedema
     Dosage: UNK, RIGHT EYE, SOLUTION FOR INJECTION, 40 MG/ML
     Dates: start: 20240704, end: 20240704
  2. EYLEA [Suspect]
     Active Substance: AFLIBERCEPT
     Dosage: 2 MG, ONCE, LEFT EYE, SOLUTION FOR INJECTION, 40 MG/ML
     Route: 031
     Dates: start: 20240829, end: 20240829

REACTIONS (2)
  - Ocular hypertension [Unknown]
  - Eye inflammation [Unknown]
